FAERS Safety Report 13782324 (Version 1)
Quarter: 2017Q3

REPORT INFORMATION
  Report Type: Spontaneous
  Country: US (occurrence: US)
  Receive Date: 20170724
  Receipt Date: 20170724
  Transmission Date: 20171127
  Serious: No
  Sender: FDA-Public Use
  Company Number: US-MEDA-2017070015

PATIENT
  Age: 50 Year
  Sex: Female
  Weight: 82 kg

DRUGS (1)
  1. DYMISTA [Suspect]
     Active Substance: AZELASTINE HYDROCHLORIDE\FLUTICASONE PROPIONATE
     Indication: RHINITIS ALLERGIC
     Dates: start: 201706

REACTIONS (5)
  - Erythema [Recovering/Resolving]
  - Haemorrhage [Recovering/Resolving]
  - Peripheral swelling [Recovering/Resolving]
  - Product quality issue [Unknown]
  - Laceration [Recovering/Resolving]

NARRATIVE: CASE EVENT DATE: 201707
